FAERS Safety Report 17515059 (Version 1)
Quarter: 2020Q1

REPORT INFORMATION
  Report Type: Report from Study
  Country: US (occurrence: US)
  Receive Date: 20200309
  Receipt Date: 20200309
  Transmission Date: 20200409
  Serious: Yes (Death)
  Sender: FDA-Public Use
  Company Number: US-ASTRAZENECA-2020SE34511

PATIENT
  Sex: Female

DRUGS (22)
  1. DIFLUCAN [Concomitant]
     Active Substance: FLUCONAZOLE
  2. MOBIC [Concomitant]
     Active Substance: MELOXICAM
  3. MORPHINE SULFATE. [Concomitant]
     Active Substance: MORPHINE SULFATE
  4. MACROBID [Concomitant]
     Active Substance: NITROFURANTOIN\NITROFURANTOIN MONOHYDRATE
  5. VITAMIN B12 [Concomitant]
     Active Substance: CYANOCOBALAMIN
  6. LACTOSE [Concomitant]
     Active Substance: LACTOSE
  7. STOOL SOFTENER + STIMULANT LAX [Concomitant]
  8. MOBIC [Concomitant]
     Active Substance: MELOXICAM
  9. ZOCOR [Concomitant]
     Active Substance: SIMVASTATIN
  10. DOCUSATE CALCIUM. [Concomitant]
     Active Substance: DOCUSATE CALCIUM
  11. CALCIUM + D3 [Concomitant]
     Active Substance: CALCIUM\CHOLECALCIFEROL
  12. VITAMIN D2 [Concomitant]
     Active Substance: ERGOCALCIFEROL
  13. ONDANSETRON ODT [Concomitant]
     Active Substance: ONDANSETRON
  14. GABAPENTIN. [Concomitant]
     Active Substance: GABAPENTIN
  15. CARAFATE [Concomitant]
     Active Substance: SUCRALFATE
  16. METHIMAZOLE. [Concomitant]
     Active Substance: METHIMAZOLE
  17. METHOTREXATE. [Concomitant]
     Active Substance: METHOTREXATE
  18. TAGRISSO [Suspect]
     Active Substance: OSIMERTINIB
     Indication: LUNG NEOPLASM MALIGNANT
     Route: 048
     Dates: start: 20190103
  19. PRILOSEC OTC [Suspect]
     Active Substance: OMEPRAZOLE MAGNESIUM
     Dosage: UNKNOWN
     Route: 048
  20. MORPHINE SULFATE. [Concomitant]
     Active Substance: MORPHINE SULFATE
  21. ELIQUIS [Concomitant]
     Active Substance: APIXABAN
  22. FOLIC ACID. [Concomitant]
     Active Substance: FOLIC ACID

REACTIONS (1)
  - Death [Fatal]
